FAERS Safety Report 5058172-4 (Version None)
Quarter: 2006Q3

REPORT INFORMATION
  Report Type: 
  Country: None (occurrence: None)
  Receive Date: 20060721
  Receipt Date: 20060713
  Transmission Date: 20061208
  Serious: Yes (Death)
  Sender: FDA-Public Use
  Company Number: SE-JNJFOC-20060702919

PATIENT
  Age: 21 Year
  Sex: Female
  Weight: 112.5 kg

DRUGS (3)
  1. TRINOVUM [Suspect]
     Indication: CONTRACEPTION
     Route: 048
  2. DESOLETT [Suspect]
     Indication: CONTRACEPTION
     Route: 065
  3. BETAPRED [Suspect]
     Indication: DRUG USE FOR UNKNOWN INDICATION
     Route: 065

REACTIONS (6)
  - BENIGN INTRACRANIAL HYPERTENSION [None]
  - HEADACHE [None]
  - PLEURISY [None]
  - PULMONARY EMBOLISM [None]
  - THIRST [None]
  - WEIGHT INCREASED [None]
